FAERS Safety Report 17892016 (Version 2)
Quarter: 2020Q3

REPORT INFORMATION
  Report Type: Report from Study
  Country: US (occurrence: US)
  Receive Date: 20200612
  Receipt Date: 20200715
  Transmission Date: 20201103
  Serious: No
  Sender: FDA-Public Use
  Company Number: NVSC2020US164589

PATIENT
  Age: 77 Year
  Sex: Female

DRUGS (3)
  1. ENTRESTO [Suspect]
     Active Substance: SACUBITRIL\VALSARTAN
     Indication: CARDIAC FAILURE CONGESTIVE
     Dosage: 24.26 MG, ONCE2SDO
     Route: 048
     Dates: start: 202005
  2. ENTRESTO [Suspect]
     Active Substance: SACUBITRIL\VALSARTAN
     Dosage: 24.26 MG, BID
     Route: 048
     Dates: start: 202005
  3. ENTRESTO [Suspect]
     Active Substance: SACUBITRIL\VALSARTAN
     Indication: CARDIAC FAILURE CONGESTIVE
     Dosage: 12.13 MG, ONCE2SDO (HALF PILL AM AND HALF PILL PM)
     Route: 048
     Dates: start: 202005

REACTIONS (2)
  - Fatigue [Recovering/Resolving]
  - Wrong technique in product usage process [Recovering/Resolving]

NARRATIVE: CASE EVENT DATE: 202005
